FAERS Safety Report 4874079-7 (Version None)
Quarter: 2006Q1

REPORT INFORMATION
  Report Type: 
  Country: None (occurrence: None)
  Receive Date: 20060104
  Receipt Date: 20051220
  Transmission Date: 20060701
  Serious: Yes (Other)
  Sender: FDA-Public Use
  Company Number: 2005172064

PATIENT
  Sex: Female
  Weight: 82.5547 kg

DRUGS (6)
  1. DILANTIN KAPSEAL [Suspect]
     Indication: CONVULSION PROPHYLAXIS
     Dosage: 300 MG (100 MG 3 IN 1 D) ORAL
     Route: 048
     Dates: start: 19820101
  2. NORVASC [Suspect]
  3. ANASTROZOLE (ANASTROZOLE) [Concomitant]
  4. HYDROCHLOROTHIAZIDE [Concomitant]
  5. FEOSOL (FERROUS SULFATE) [Concomitant]
  6. GOEODON (ZIPRASIDONE) [Suspect]
     Indication: ILL-DEFINED DISORDER

REACTIONS (5)
  - BODY HEIGHT DECREASED [None]
  - BURNING SENSATION [None]
  - CONVULSION [None]
  - MASTECTOMY [None]
  - TREATMENT NONCOMPLIANCE [None]
